FAERS Safety Report 4838579-8 (Version None)
Quarter: 2005Q4

REPORT INFORMATION
  Report Type: 
  Country: None (occurrence: None)
  Receive Date: 20051123
  Receipt Date: 20051123
  Transmission Date: 20060501
  Serious: Yes (Hospitalization)
  Sender: FDA-Public Use
  Company Number: None

PATIENT
  Age: 59 Year
  Sex: Male
  Weight: 76.2 kg

DRUGS (15)
  1. CARBOPLATIN [Suspect]
  2. PACLITAXEL [Suspect]
     Dosage: 256 MGIV
     Route: 042
     Dates: start: 20050331, end: 20050331
  3. CHLORDIAZEPOXIDE HCL [Concomitant]
  4. CALCIUM / VITAMIN D [Concomitant]
  5. FOLIC ACID [Concomitant]
  6. MULTI-VITAMIN [Concomitant]
  7. THIAMINE HCL [Concomitant]
  8. LISINOPRIL [Concomitant]
  9. APREPITANT [Concomitant]
  10. DEXAMETHASONE [Concomitant]
  11. IBUPROFEN [Concomitant]
  12. ATENOLOL [Concomitant]
  13. HYDROCHLOROTHIAZIDE [Concomitant]
  14. NYSTATIN [Concomitant]
  15. POTASSIUM CHLORIDE [Concomitant]

REACTIONS (2)
  - MUCOSAL INFLAMMATION [None]
  - NEUTROPENIA [None]
